FAERS Safety Report 8063095-2 (Version None)
Quarter: 2012Q1

REPORT INFORMATION
  Report Type: 
  Country: None (occurrence: None)
  Receive Date: 20120109
  Receipt Date: 20111226
  Transmission Date: 20120608
  Serious: Yes (Hospitalization)
  Sender: FDA-Public Use
  Company Number: 2011MA017997

PATIENT
  Sex: Male

DRUGS (1)
  1. DIGOXIN [Suspect]
     Indication: PRODUCT USED FOR UNKNOWN INDICATION
     Dosage: 0.125 MG;PO
     Route: 048
     Dates: start: 20070516, end: 20070707

REACTIONS (3)
  - ASTHENIA [None]
  - DYSPNOEA [None]
  - CORONARY ARTERY BYPASS [None]
